FAERS Safety Report 7479862-X (Version None)
Quarter: 2011Q2

REPORT INFORMATION
  Report Type: 
  Country: None (occurrence: None)
  Receive Date: 20110515
  Receipt Date: 20110318
  Transmission Date: 20111010
  Serious: No
  Sender: FDA-Public Use
  Company Number: US-NOVEN-11US002022

PATIENT
  Sex: Male

DRUGS (1)
  1. DAYTRANA [Suspect]
     Indication: ATTENTION DEFICIT/HYPERACTIVITY DISORDER
     Dosage: 10 MG, QD
     Route: 062
     Dates: start: 20100901, end: 20110308

REACTIONS (5)
  - DRUG DOSE OMISSION [None]
  - AGGRESSION [None]
  - INTENTIONAL DRUG MISUSE [None]
  - DISTURBANCE IN ATTENTION [None]
  - WRONG TECHNIQUE IN DRUG USAGE PROCESS [None]
